FAERS Safety Report 19206390 (Version 1)
Quarter: 2021Q2

REPORT INFORMATION
  Report Type: Spontaneous
  Country: US (occurrence: US)
  Receive Date: 20210503
  Receipt Date: 20210503
  Transmission Date: 20210717
  Serious: Yes (Hospitalization)
  Sender: FDA-Public Use
  Company Number: None

PATIENT
  Age: 40 Year
  Sex: Female
  Weight: 49.5 kg

DRUGS (2)
  1. METOCLOPRAMIDE. [Suspect]
     Active Substance: METOCLOPRAMIDE
     Indication: MIGRAINE
     Dosage: ?          QUANTITY:1 TABLET(S);?
     Route: 048
     Dates: start: 20200526, end: 20200531
  2. TYLENOL [Concomitant]
     Active Substance: ACETAMINOPHEN

REACTIONS (10)
  - Panic attack [None]
  - Formication [None]
  - Muscle twitching [None]
  - Anxiety [None]
  - Pain [None]
  - Muscle spasms [None]
  - Weight decreased [None]
  - Intrusive thoughts [None]
  - Nausea [None]
  - Feeding disorder [None]

NARRATIVE: CASE EVENT DATE: 20200526
